FAERS Safety Report 4605014-4 (Version None)
Quarter: 2005Q1

REPORT INFORMATION
  Report Type: 
  Country: None (occurrence: None)
  Receive Date: 20050311
  Receipt Date: 20050228
  Transmission Date: 20050727
  Serious: Yes (Death)
  Sender: FDA-Public Use
  Company Number: FR-JNJFOC-20050300079

PATIENT
  Age: 53 Year
  Sex: Female

DRUGS (5)
  1. RISPERDAL [Suspect]
     Route: 049
  2. RISPERDAL [Suspect]
     Dosage: SINCE SEVERAL MONTHS
     Route: 049
  3. ABILIFY [Concomitant]
  4. RIVOTRIL [Concomitant]
  5. TERCIAN [Concomitant]

REACTIONS (3)
  - DEATH [None]
  - PULMONARY EMBOLISM [None]
  - PYREXIA [None]
